FAERS Safety Report 4746913-2 (Version None)
Quarter: 2005Q3

REPORT INFORMATION
  Report Type: 
  Country: None (occurrence: None)
  Receive Date: 20050815
  Receipt Date: 20050802
  Transmission Date: 20060218
  Serious: Yes (Other)
  Sender: FDA-Public Use
  Company Number: USA0508104412

PATIENT
  Age: 65 Year
  Sex: Female
  Weight: 120 kg

DRUGS (5)
  1. HUMULIN 70/30 [Suspect]
     Dosage: 40 U/3 DAY
     Dates: start: 20020101
  2. HUMALOG [Suspect]
     Dates: end: 20020101
  3. ACTOS [Concomitant]
  4. GLUCOPHAGE [Concomitant]
  5. LANTUS [Concomitant]

REACTIONS (3)
  - DIABETES MELLITUS INADEQUATE CONTROL [None]
  - PULSE ABSENT [None]
  - WEIGHT INCREASED [None]
